FAERS Safety Report 25502591 (Version 2)
Quarter: 2025Q3

REPORT INFORMATION
  Report Type: Report from Study
  Country: EU (occurrence: EU)
  Receive Date: 20250702
  Receipt Date: 20250722
  Transmission Date: 20251020
  Serious: Yes (Death, Life-Threatening, Other)
  Sender: ABBVIE
  Company Number: EU-ABBVIE-6352820

PATIENT
  Age: 71 Year
  Sex: Male
  Weight: 74 kg

DRUGS (1)
  1. VENETOCLAX [Suspect]
     Active Substance: VENETOCLAX
     Indication: Chronic lymphocytic leukaemia
     Route: 048
     Dates: start: 20221026, end: 20230917

REACTIONS (1)
  - COVID-19 [Fatal]

NARRATIVE: CASE EVENT DATE: 20231017
